FAERS Safety Report 22265092 (Version 2)
Quarter: 2023Q2

REPORT INFORMATION
  Report Type: Spontaneous
  Country: CN (occurrence: CN)
  Receive Date: 20230428
  Receipt Date: 20230515
  Transmission Date: 20230721
  Serious: Yes (Other)
  Sender: FDA-Public Use
  Company Number: CN-BAYER-2023A052181

PATIENT
  Age: 4 Decade
  Sex: Female

DRUGS (1)
  1. YASMIN [Suspect]
     Active Substance: DROSPIRENONE\ETHINYL ESTRADIOL
     Dosage: UNK
     Route: 048
     Dates: start: 20230330, end: 202304

REACTIONS (3)
  - Intermenstrual bleeding [None]
  - Discomfort [None]
  - Suspected product quality issue [None]

NARRATIVE: CASE EVENT DATE: 20230401
